FAERS Safety Report 9879848 (Version 1)
Quarter: 2014Q1

REPORT INFORMATION
  Report Type: Spontaneous
  Country: US (occurrence: US)
  Receive Date: 20140206
  Receipt Date: 20140206
  Transmission Date: 20141002
  Serious: No
  Sender: FDA-Public Use
  Company Number: US-009507513-1401USA011687

PATIENT
  Age: 57 Year
  Sex: Male

DRUGS (8)
  1. INVANZ [Suspect]
     Indication: INFECTION
     Dosage: 1 G, QD
     Route: 042
     Dates: start: 20131114, end: 20140122
  2. CARVEDILOL [Concomitant]
  3. FUROSEMIDE [Concomitant]
  4. SPIRONOLACTONE [Concomitant]
  5. LISINOPRIL [Concomitant]
     Route: 048
  6. POTASSIUM CHLORIDE [Concomitant]
  7. NEURONTIN [Concomitant]
  8. PERCOCET [Concomitant]

REACTIONS (3)
  - Dyspepsia [Not Recovered/Not Resolved]
  - Decreased appetite [Not Recovered/Not Resolved]
  - Wrong technique in drug usage process [Unknown]
